FAERS Safety Report 11777298 (Version 1)
Quarter: 2015Q4

REPORT INFORMATION
  Report Type: Spontaneous
  Country: US (occurrence: US)
  Receive Date: 20151125
  Receipt Date: 20151125
  Transmission Date: 20160304
  Serious: No
  Sender: FDA-Public Use
  Company Number: US-MALLINCKRODT-T201501698

PATIENT
  Sex: Female

DRUGS (3)
  1. GABLOFEN [Suspect]
     Active Substance: BACLOFEN
     Indication: MUSCLE SPASTICITY
     Dosage: RANGED FROM 3 MCG/DAY TO 900 MCG/DAY
     Route: 037
     Dates: end: 2015
  2. LIORESAL [Suspect]
     Active Substance: BACLOFEN
     Indication: MUSCLE SPASTICITY
     Route: 037
  3. GABLOFEN [Suspect]
     Active Substance: BACLOFEN
     Dosage: UNK
     Route: 037
     Dates: start: 2015, end: 2015

REACTIONS (5)
  - Muscle tone disorder [Unknown]
  - Drug intolerance [Not Recovered/Not Resolved]
  - Back pain [Recovered/Resolved]
  - Pruritus [Unknown]
  - Neuralgia [Recovered/Resolved]

NARRATIVE: CASE EVENT DATE: 2010
